FAERS Safety Report 5537586-X (Version None)
Quarter: 2007Q4

REPORT INFORMATION
  Report Type: 
  Country: None (occurrence: None)
  Receive Date: 20071207
  Receipt Date: 20071127
  Transmission Date: 20080405
  Serious: Yes (Hospitalization, Other)
  Sender: FDA-Public Use
  Company Number: US-AMGEN-US253090

PATIENT
  Sex: Female

DRUGS (7)
  1. ENBREL [Suspect]
     Indication: RHEUMATOID ARTHRITIS
     Route: 058
     Dates: start: 20030508, end: 20071015
  2. ASTELIN [Concomitant]
     Route: 045
  3. RHINOCORT [Concomitant]
     Route: 045
  4. MYLANTA [Concomitant]
  5. ECOTRIN [Concomitant]
     Route: 048
  6. CRESTOR [Concomitant]
  7. NEXIUM [Concomitant]

REACTIONS (2)
  - CHOLELITHIASIS [None]
  - THYMUS ENLARGEMENT [None]
